FAERS Safety Report 11130903 (Version 1)
Quarter: 2015Q2

REPORT INFORMATION
  Report Type: Spontaneous
  Country: US (occurrence: US)
  Receive Date: 20150522
  Receipt Date: 20150522
  Transmission Date: 20150821
  Serious: No
  Sender: FDA-Public Use
  Company Number: US-BAYER-2015-261051

PATIENT
  Age: 35 Year
  Sex: Female
  Weight: 127.44 kg

DRUGS (2)
  1. ALEVE PM [Suspect]
     Active Substance: DIPHENHYDRAMINE HYDROCHLORIDE\NAPROXEN SODIUM
     Indication: SLEEP DISORDER THERAPY
     Dosage: 2 DF, PRN
     Route: 048
     Dates: start: 20150519, end: 20150520
  2. ALEVE PM [Suspect]
     Active Substance: DIPHENHYDRAMINE HYDROCHLORIDE\NAPROXEN SODIUM
     Indication: SLEEP DISORDER THERAPY
     Dosage: 4 DF, UNK
     Route: 048
     Dates: start: 20150520

REACTIONS (2)
  - Extra dose administered [None]
  - Product use issue [None]

NARRATIVE: CASE EVENT DATE: 20150520
